FAERS Safety Report 15400240 (Version 1)
Quarter: 2018Q3

REPORT INFORMATION
  Report Type: Spontaneous
  Country: US (occurrence: US)
  Receive Date: 20180919
  Receipt Date: 20180919
  Transmission Date: 20181010
  Serious: No
  Sender: FDA-Public Use
  Company Number: US-BION-006931

PATIENT
  Age: 85 Year
  Sex: Female
  Weight: 54.43 kg

DRUGS (1)
  1. ZYRTEC [Suspect]
     Active Substance: CETIRIZINE HYDROCHLORIDE
     Indication: SINUS OPERATION
     Dosage: 1 LIQUID GEL 1 TIME
     Route: 048
     Dates: start: 20180131

REACTIONS (3)
  - Drug prescribing error [Not Recovered/Not Resolved]
  - Fatigue [Recovered/Resolved]
  - Product use in unapproved indication [Not Recovered/Not Resolved]

NARRATIVE: CASE EVENT DATE: 20180131
